FAERS Safety Report 13357074 (Version 1)
Quarter: 2017Q1

REPORT INFORMATION
  Report Type: Report from Study
  Country: None (occurrence: US)
  Receive Date: 20170322
  Receipt Date: 20170322
  Transmission Date: 20170429
  Serious: Yes (Other)
  Sender: FDA-Public Use
  Company Number: US-ABBVIE-17K-163-1909331-00

PATIENT
  Age: 35 Year
  Sex: Female
  Weight: 102.15 kg

DRUGS (13)
  1. OXYCODONE [Concomitant]
     Active Substance: OXYCODONE
     Indication: NECK PAIN
  2. ZOFRAN [Concomitant]
     Active Substance: ONDANSETRON HYDROCHLORIDE
     Indication: PRODUCT USED FOR UNKNOWN INDICATION
  3. HUMIRA [Suspect]
     Active Substance: ADALIMUMAB
     Route: 058
     Dates: start: 201701
  4. HUMIRA [Suspect]
     Active Substance: ADALIMUMAB
     Indication: PSORIASIS
     Route: 058
     Dates: start: 2012, end: 2013
  5. OXYCODONE [Concomitant]
     Active Substance: OXYCODONE
     Indication: BACK PAIN
  6. MOTRIN [Concomitant]
     Active Substance: IBUPROFEN
     Indication: NECK PAIN
  7. IMITREX [Concomitant]
     Active Substance: SUMATRIPTAN SUCCINATE
     Indication: MIGRAINE
  8. PREVACID [Concomitant]
     Active Substance: LANSOPRAZOLE
     Indication: GASTROOESOPHAGEAL REFLUX DISEASE
  9. HUMIRA [Suspect]
     Active Substance: ADALIMUMAB
     Indication: HIDRADENITIS
     Route: 058
     Dates: start: 2015, end: 201612
  10. WELLBUTRIN [Concomitant]
     Active Substance: BUPROPION HYDROCHLORIDE
     Indication: ANXIETY
  11. ZYRTEC [Concomitant]
     Active Substance: CETIRIZINE HYDROCHLORIDE
     Indication: SEASONAL ALLERGY
  12. MOTRIN [Concomitant]
     Active Substance: IBUPROFEN
     Indication: BACK PAIN
  13. COLACE [Concomitant]
     Active Substance: DOCUSATE SODIUM
     Indication: PRODUCT USED FOR UNKNOWN INDICATION

REACTIONS (11)
  - Post procedural complication [Recovered/Resolved]
  - Hypoaesthesia [Not Recovered/Not Resolved]
  - Intervertebral disc protrusion [Recovered/Resolved]
  - Dyspnoea exertional [Not Recovered/Not Resolved]
  - Urticaria [Not Recovered/Not Resolved]
  - Aphonia [Recovered/Resolved]
  - Erythema [Not Recovered/Not Resolved]
  - Limb discomfort [Not Recovered/Not Resolved]
  - Chest pain [Not Recovered/Not Resolved]
  - Oedema peripheral [Not Recovered/Not Resolved]
  - Rash macular [Not Recovered/Not Resolved]

NARRATIVE: CASE EVENT DATE: 2012
